FAERS Safety Report 13575474 (Version 1)
Quarter: 2017Q2

REPORT INFORMATION
  Report Type: Spontaneous
  Country: TR (occurrence: TR)
  Receive Date: 20170524
  Receipt Date: 20170524
  Transmission Date: 20170830
  Serious: Yes (Other)
  Sender: FDA-Public Use
  Company Number: TR-MACLEODS PHARMACEUTICALS US LTD-MAC2017005056

PATIENT

DRUGS (1)
  1. SILDENAFIL. [Suspect]
     Active Substance: SILDENAFIL
     Indication: PRODUCT USED FOR UNKNOWN INDICATION
     Dosage: 20 MG, 2-3 TIMES A DAY HIGH DOSE
     Route: 065

REACTIONS (4)
  - Transverse sinus thrombosis [Unknown]
  - Visual impairment [Unknown]
  - Headache [Unknown]
  - Papilloedema [Unknown]
